FAERS Safety Report 6635485-3 (Version None)
Quarter: 2010Q1

REPORT INFORMATION
  Report Type: 
  Country: None (occurrence: None)
  Receive Date: 20100315
  Receipt Date: 20090610
  Transmission Date: 20100710
  Serious: No
  Sender: FDA-Public Use
  Company Number: US-ABBOTT-09P-163-0579466-00

PATIENT
  Sex: Male
  Weight: 86.26 kg

DRUGS (6)
  1. DEPAKOTE [Suspect]
     Indication: BIPOLAR DISORDER
     Route: 048
     Dates: start: 20090501
  2. DIVALPROEX SODIUM [Suspect]
     Indication: BIPOLAR DISORDER
     Route: 048
     Dates: start: 20090501
  3. LUNESTA [Concomitant]
     Indication: INSOMNIA
     Route: 048
     Dates: start: 20060101
  4. CRESTOR [Concomitant]
     Indication: BLOOD CHOLESTEROL INCREASED
     Route: 048
  5. SINGULAIR [Concomitant]
     Indication: SEASONAL ALLERGY
     Route: 048
  6. CLARINEX [Concomitant]
     Indication: SEASONAL ALLERGY
     Route: 048

REACTIONS (1)
  - INSOMNIA [None]
